FAERS Safety Report 8451698-2 (Version None)
Quarter: 2012Q2

REPORT INFORMATION
  Report Type: 
  Country: None (occurrence: None)
  Receive Date: 20120620
  Receipt Date: 20120314
  Transmission Date: 20120825
  Serious: No
  Sender: FDA-Public Use
  Company Number: US-VERTEX PHARMACEUTICALS INC.-AE-2012-003654

PATIENT
  Sex: Female
  Weight: 59 kg

DRUGS (7)
  1. PEGASYS [Concomitant]
     Indication: HEPATITIS C
     Dates: start: 20111212
  2. COMBIGAN [Concomitant]
     Indication: GLAUCOMA
     Route: 047
  3. XALATAN [Concomitant]
     Indication: GLAUCOMA
     Route: 047
  4. RIBAVIRIN [Concomitant]
     Indication: HEPATITIS C
     Dates: start: 20111212
  5. CLONIDINE [Concomitant]
     Indication: BLOOD PRESSURE INCREASED
     Route: 048
  6. INCIVEK [Suspect]
     Indication: HEPATITIS C
     Route: 048
     Dates: start: 20111212
  7. EFFEXOR XR [Concomitant]
     Indication: DEPRESSION
     Route: 048
     Dates: start: 20111208

REACTIONS (1)
  - PRURITUS [None]
